FAERS Safety Report 24253149 (Version 2)
Quarter: 2024Q3

REPORT INFORMATION
  Report Type: Spontaneous
  Country: AR (occurrence: AR)
  Receive Date: 20240827
  Receipt Date: 20240906
  Transmission Date: 20241016
  Serious: Yes (Hospitalization, Other)
  Sender: GLAXOSMITHKLINE
  Company Number: AR-GLAXOSMITHKLINE-AR2023AMR126162

PATIENT

DRUGS (3)
  1. NUCALA [Suspect]
     Active Substance: MEPOLIZUMAB
     Indication: Hypereosinophilic syndrome
     Dosage: 100 MG, Q4W,2 DOSES,EVERY 28 DAYS
     Route: 042
     Dates: start: 20210614
  2. NUCALA [Suspect]
     Active Substance: MEPOLIZUMAB
     Indication: Hypereosinophilic syndrome
     Dosage: 200 MG, Q4W
  3. NUCALA [Suspect]
     Active Substance: MEPOLIZUMAB
     Dosage: 200 MG, (EVERY 50 DAYS)

REACTIONS (5)
  - Arrhythmia [Not Recovered/Not Resolved]
  - Tonsillar hypertrophy [Recovered/Resolved]
  - Off label use [Not Recovered/Not Resolved]
  - Inappropriate schedule of product administration [Unknown]
  - Product prescribing error [Unknown]

NARRATIVE: CASE EVENT DATE: 20240216
